FAERS Safety Report 19575464 (Version 2)
Quarter: 2021Q3

REPORT INFORMATION
  Report Type: Report from Study
  Country: CA (occurrence: CA)
  Receive Date: 20210719
  Receipt Date: 20210818
  Transmission Date: 20211014
  Serious: Yes (Other)
  Sender: FDA-Public Use
  Company Number: CA-UCBSA-2021033320

PATIENT
  Sex: Male

DRUGS (2)
  1. LACOSAMIDE. [Suspect]
     Active Substance: LACOSAMIDE
     Indication: FRONTAL LOBE EPILEPSY
     Dosage: 150 MILLIGRAM, 2X/DAY (BID)
     Route: 048
  2. LACOSAMIDE. [Suspect]
     Active Substance: LACOSAMIDE
     Indication: EPILEPSY

REACTIONS (6)
  - Frontal lobe epilepsy [Not Recovered/Not Resolved]
  - Generalised tonic-clonic seizure [Not Recovered/Not Resolved]
  - Product availability issue [Unknown]
  - Vitamin B12 deficiency [Not Recovered/Not Resolved]
  - Therapy interrupted [Unknown]
  - Folate deficiency [Not Recovered/Not Resolved]
